FAERS Safety Report 5477738-0 (Version None)
Quarter: 2007Q4

REPORT INFORMATION
  Report Type: 
  Country: None (occurrence: None)
  Receive Date: 20071002
  Receipt Date: 20071002
  Transmission Date: 20080405
  Serious: Yes (Other)
  Sender: FDA-Public Use
  Company Number: None

PATIENT
  Sex: Female
  Weight: 63.5036 kg

DRUGS (2)
  1. BUPROPION HCL [Suspect]
     Indication: DEPRESSION
     Dosage: 1 TABLET ONCE A DAY PO
     Route: 048
     Dates: start: 20070508, end: 20070708
  2. BUPROPION HCL [Suspect]
     Indication: DEPRESSION
     Dosage: 1 TABLET ONCE A DAY PO
     Route: 048
     Dates: start: 20070808, end: 20070908

REACTIONS (2)
  - DEPRESSION [None]
  - PHARMACEUTICAL PRODUCT COMPLAINT [None]
